FAERS Safety Report 6210628-4 (Version None)
Quarter: 2009Q2

REPORT INFORMATION
  Report Type: 
  Country: None (occurrence: None)
  Receive Date: 20090528
  Receipt Date: 20090515
  Transmission Date: 20091009
  Serious: Yes (Hospitalization)
  Sender: FDA-Public Use
  Company Number: 230141K09USA

PATIENT
  Age: 66 Year
  Sex: Female

DRUGS (4)
  1. REBIF [Suspect]
     Indication: MULTIPLE SCLEROSIS
     Dosage: 44 MCG, 3 IN 1 WEEKS, SUBCUTANEOUS
     Route: 058
     Dates: start: 20070801
  2. NEURONTIN [Concomitant]
  3. CYMBALTA [Concomitant]
  4. ZETIA [Concomitant]

REACTIONS (1)
  - APPENDICITIS [None]
